FAERS Safety Report 25668910 (Version 1)
Quarter: 2025Q3

REPORT INFORMATION
  Report Type: Spontaneous
  Country: AU (occurrence: AU)
  Receive Date: 20250812
  Receipt Date: 20250812
  Transmission Date: 20251021
  Serious: Yes (Hospitalization, Other)
  Sender: BAXTER
  Company Number: AU-BAXTER-2025BAX019389

PATIENT
  Age: 70 Year
  Sex: Male
  Weight: 65 kg

DRUGS (16)
  1. CYCLOPHOSPHAMIDE [Suspect]
     Active Substance: CYCLOPHOSPHAMIDE
     Indication: Diffuse large B-cell lymphoma
     Route: 065
     Dates: start: 20211105, end: 20220218
  2. DOXORUBICIN [Suspect]
     Active Substance: DOXORUBICIN
     Indication: Diffuse large B-cell lymphoma
     Route: 042
     Dates: start: 20211105, end: 20220218
  3. PREDNISOLONE [Suspect]
     Active Substance: PREDNISOLONE
     Indication: Diffuse large B-cell lymphoma
     Route: 042
     Dates: start: 20211105, end: 20220218
  4. RITUXIMAB [Suspect]
     Active Substance: RITUXIMAB
     Indication: Diffuse large B-cell lymphoma
     Route: 065
     Dates: start: 20211105, end: 20220218
  5. VINCRISTINE [Suspect]
     Active Substance: VINCRISTINE
     Indication: Diffuse large B-cell lymphoma
     Route: 042
     Dates: start: 20211105, end: 20220218
  6. AMLODIPINE [Concomitant]
     Active Substance: AMLODIPINE BESYLATE
     Indication: Hypertension
     Route: 048
     Dates: start: 2011
  7. PANTOPRAZOLE [Concomitant]
     Active Substance: PANTOPRAZOLE
     Indication: Antacid therapy
     Route: 048
     Dates: start: 20211026
  8. METOCLOPRAMIDE [Concomitant]
     Active Substance: METOCLOPRAMIDE
     Indication: Nausea
     Route: 048
     Dates: start: 20211026
  9. VALACYCLOVIR [Concomitant]
     Active Substance: VALACYCLOVIR HYDROCHLORIDE
     Indication: Antiviral prophylaxis
     Route: 048
     Dates: start: 20211029
  10. SULFAMETHOXAZOLE AND TRIMETHOPRIM [Concomitant]
     Active Substance: SULFAMETHOXAZOLE\TRIMETHOPRIM
     Indication: Pneumocystis jirovecii pneumonia
     Route: 048
     Dates: start: 20211108
  11. SULFAMETHOXAZOLE AND TRIMETHOPRIM [Concomitant]
     Active Substance: SULFAMETHOXAZOLE\TRIMETHOPRIM
     Indication: Prophylaxis
  12. DOCUSATE SODIUM\SENNOSIDES A AND B [Concomitant]
     Active Substance: DOCUSATE SODIUM\SENNOSIDES A AND B
     Indication: Constipation
     Route: 048
     Dates: start: 20211110
  13. POLYETHYLENE GLYCOL 3350\POTASSIUM CHLORIDE\SODIUM BICARBONATE\SODIUM [Concomitant]
     Active Substance: POLYETHYLENE GLYCOL 3350\POTASSIUM CHLORIDE\SODIUM BICARBONATE\SODIUM CHLORIDE
     Indication: Constipation
     Route: 048
     Dates: start: 20211110
  14. CHOLECALCIFEROL [Concomitant]
     Active Substance: CHOLECALCIFEROL
     Indication: Vitamin supplementation
     Route: 048
     Dates: start: 20220121
  15. ASPIRIN [Concomitant]
     Active Substance: ASPIRIN
     Indication: Thrombosis prophylaxis
     Route: 065
     Dates: start: 20211110, end: 20220226
  16. ENOXAPARIN [Concomitant]
     Active Substance: ENOXAPARIN
     Indication: Thrombosis prophylaxis
     Route: 065
     Dates: start: 20211025, end: 20211108

REACTIONS (2)
  - Subdural haematoma [Recovered/Resolved]
  - Brain oedema [Unknown]

NARRATIVE: CASE EVENT DATE: 20220312
